FAERS Safety Report 6980642-X (Version None)
Quarter: 2010Q3

REPORT INFORMATION
  Report Type: 
  Country: None (occurrence: None)
  Receive Date: 20100908
  Receipt Date: 20100831
  Transmission Date: 20110219
  Serious: Yes (Hospitalization)
  Sender: FDA-Public Use
  Company Number: 2010MA000084

PATIENT
  Age: 63 Year
  Sex: Female

DRUGS (4)
  1. INDAPAMIDE [Suspect]
     Dosage: 1.5 MG: QD;
     Dates: start: 20040101, end: 20040101
  2. COZAAR [Suspect]
     Indication: HYPERTENSION
     Dosage: 100 MG; QD; PO
     Route: 048
  3. METFORMIN [Concomitant]
  4. ANTIHYPERTENSIVES [Concomitant]

REACTIONS (9)
  - BLOOD CHOLESTEROL INCREASED [None]
  - BLOOD PRESSURE INCREASED [None]
  - CEREBRAL HAEMORRHAGE [None]
  - CEREBROVASCULAR ACCIDENT [None]
  - MALAISE [None]
  - MUSCULAR WEAKNESS [None]
  - THYROID CANCER [None]
  - TRANSIENT ISCHAEMIC ATTACK [None]
  - VISUAL IMPAIRMENT [None]
